FAERS Safety Report 9357923 (Version 4)
Quarter: 2013Q3

REPORT INFORMATION
  Report Type: Spontaneous
  Country: US (occurrence: None)
  Receive Date: 20130617
  Receipt Date: 20130712
  Transmission Date: 20140515
  Serious: Yes (Hospitalization)
  Sender: FDA-Public Use
  Company Number: 148598

PATIENT
  Age: 81 Year
  Sex: Male
  Weight: 43 kg

DRUGS (1)
  1. LEUCOVORIN CALCIUM [Suspect]
     Indication: COLORECTAL CANCER
     Route: 042
     Dates: start: 20130314, end: 20130508

REACTIONS (14)
  - Stomatitis [None]
  - Interstitial lung disease [None]
  - Blood sodium decreased [None]
  - Haemoglobin decreased [None]
  - Gait disturbance [None]
  - Hypoaesthesia [None]
  - Neutropenia [None]
  - White blood cell count decreased [None]
  - Pleural effusion [None]
  - Metastases to liver [None]
  - Jaundice cholestatic [None]
  - Hepatic failure [None]
  - Colorectal cancer [None]
  - Malignant neoplasm progression [None]
